FAERS Safety Report 10070553 (Version 1)
Quarter: 2014Q2

REPORT INFORMATION
  Report Type: Spontaneous
  Country: GB (occurrence: GB)
  Receive Date: 20140410
  Receipt Date: 20140410
  Transmission Date: 20141212
  Serious: Yes (Life-Threatening, Hospitalization, Other)
  Sender: FDA-Public Use
  Company Number: GB-PFIZER INC-2014097804

PATIENT
  Age: 17 Year
  Sex: Female

DRUGS (2)
  1. PREGABALIN [Suspect]
     Indication: ANXIETY
     Dosage: UNK
     Route: 048
     Dates: end: 20131219
  2. CLONAZEPAM [Interacting]
     Indication: ANXIETY
     Dosage: 0.5 MG, UNK
     Route: 048
     Dates: start: 201312, end: 20131219

REACTIONS (4)
  - Drug prescribing error [Unknown]
  - Drug interaction [Unknown]
  - Agitation [Recovered/Resolved]
  - Suicidal behaviour [Recovered/Resolved]
